FAERS Safety Report 22238073 (Version 2)
Quarter: 2023Q2

REPORT INFORMATION
  Report Type: Spontaneous
  Country: GB (occurrence: None)
  Receive Date: 20230421
  Receipt Date: 20230509
  Transmission Date: 20230722
  Serious: Yes (Hospitalization, Other)
  Sender: FDA-Public Use
  Company Number: GB-ROCHE-3331086

PATIENT
  Age: 60 Year
  Sex: Female

DRUGS (10)
  1. EVRYSDI [Suspect]
     Active Substance: RISDIPLAM
     Indication: Spinal muscular atrophy
     Dosage: JUNE OR JULY/2022
     Route: 048
  2. LANSOPRAZOLE [Concomitant]
     Active Substance: LANSOPRAZOLE
  3. BISOPROLOL [Concomitant]
     Active Substance: BISOPROLOL
  4. METFORMIN [Concomitant]
     Active Substance: METFORMIN HYDROCHLORIDE
  5. AMITRIPTYLINE [Concomitant]
     Active Substance: AMITRIPTYLINE
  6. THYROXINE [Concomitant]
     Active Substance: LEVOTHYROXINE
  7. GABAPENTIN [Concomitant]
     Active Substance: GABAPENTIN
  8. DAPAGLIFLOZIN [Concomitant]
     Active Substance: DAPAGLIFLOZIN
  9. LORATADINE [Concomitant]
     Active Substance: LORATADINE
  10. SITAGLIPTIN [Concomitant]
     Active Substance: SITAGLIPTIN

REACTIONS (10)
  - Immune thrombocytopenia [Unknown]
  - Haemoglobin decreased [Unknown]
  - Non-alcoholic steatohepatitis [Unknown]
  - Blood albumin decreased [Unknown]
  - Protein total decreased [Unknown]
  - Atrial fibrillation [Unknown]
  - Varicose vein [Unknown]
  - Hepatic cirrhosis [Not Recovered/Not Resolved]
  - Thrombocytopenia [Not Recovered/Not Resolved]
  - Anaemia [Not Recovered/Not Resolved]
